FAERS Safety Report 6070724-1 (Version None)
Quarter: 2009Q1

REPORT INFORMATION
  Report Type: 
  Country: None (occurrence: None)
  Receive Date: 20090209
  Receipt Date: 20090128
  Transmission Date: 20090719
  Serious: Yes (Death, Other)
  Sender: FDA-Public Use
  Company Number: GB-ROCHE-605115

PATIENT
  Age: 77 Year
  Sex: Male

DRUGS (9)
  1. CAPECITABINE [Suspect]
     Dosage: THIS INCLUDES A 25% DOSE REDUCTION
     Route: 048
     Dates: start: 20081013
  2. CAPECITABINE [Suspect]
     Dosage: THIS INCLUDES A 25% DOSE REDUCTION
     Route: 048
     Dates: start: 20080923
  3. ASPIRIN [Concomitant]
     Route: 048
  4. CO-AMILOFRUSE [Concomitant]
  5. DIGOXIN [Concomitant]
     Route: 048
  6. ISMN [Concomitant]
     Route: 048
  7. OMEPRAZOLE [Concomitant]
  8. SALBUTAMOL [Concomitant]
     Route: 055
  9. SIMVASTATIN [Concomitant]

REACTIONS (2)
  - BLOOD CREATININE INCREASED [None]
  - MUCOSAL INFLAMMATION [None]
